FAERS Safety Report 5231118-1 (Version None)
Quarter: 2007Q1

REPORT INFORMATION
  Report Type: 
  Country: None (occurrence: None)
  Receive Date: 20070206
  Receipt Date: 20070125
  Transmission Date: 20070707
  Serious: Yes (Hospitalization)
  Sender: FDA-Public Use
  Company Number: IL-MERCK-0701ISR00014

PATIENT
  Age: 84 Year
  Sex: Female

DRUGS (7)
  1. ZETIA [Suspect]
     Indication: HYPERCHOLESTEROLAEMIA
     Route: 048
  2. ZOCOR [Suspect]
     Indication: HYPERCHOLESTEROLAEMIA
     Route: 065
  3. ZOCOR [Suspect]
     Route: 048
  4. ASPIRIN [Concomitant]
     Route: 065
  5. VERAPAMIL [Concomitant]
     Route: 065
  6. FOLIC ACID [Concomitant]
     Route: 065
  7. VITAMIN B (UNSPECIFIED) [Concomitant]
     Route: 065

REACTIONS (2)
  - HEPATIC ENZYME INCREASED [None]
  - MYOPATHY [None]
